FAERS Safety Report 8954639 (Version 1)
Quarter: 2012Q4

REPORT INFORMATION
  Report Type: Spontaneous
  Country: US (occurrence: None)
  Receive Date: 20121205
  Receipt Date: 20121205
  Transmission Date: 20130627
  Serious: No
  Sender: FDA-Public Use
  Company Number: None

PATIENT
  Sex: Female
  Weight: 73.03 kg

DRUGS (2)
  1. QUETIAPINE [Suspect]
     Indication: ADHD
     Dosage: Seroquel 25mg TID #90 PO
     Route: 048
     Dates: start: 20120611
  2. QUETIAPINE [Suspect]
     Indication: BEHAVIOR DISORDER
     Dosage: Seroquel 25mg TID #90 PO
     Route: 048
     Dates: start: 20120611

REACTIONS (1)
  - Drug ineffective [None]
